FAERS Safety Report 19576801 (Version 2)
Quarter: 2021Q3

REPORT INFORMATION
  Report Type: Report from Study
  Country: US (occurrence: US)
  Receive Date: 20210719
  Receipt Date: 20210723
  Transmission Date: 20211014
  Serious: Yes (Death, Hospitalization, Other)
  Sender: FDA-Public Use
  Company Number: US-ORGANON-O2107USA001417

PATIENT
  Sex: Female

DRUGS (5)
  1. DULERA [Suspect]
     Active Substance: FORMOTEROL FUMARATE DIHYDRATE\MOMETASONE FUROATE
     Indication: CHRONIC OBSTRUCTIVE PULMONARY DISEASE
  2. ZETIA [Suspect]
     Active Substance: EZETIMIBE
     Indication: CARDIAC DISORDER
     Dosage: 10 MG, 1 TABLET ONCE A DAY
     Route: 048
  3. JANUVIA [Suspect]
     Active Substance: SITAGLIPTIN PHOSPHATE
     Indication: DIABETES MELLITUS
     Dosage: 50 MG, 1 TABLET ONCE A DAY
     Route: 048
  4. JANUVIA [Suspect]
     Active Substance: SITAGLIPTIN PHOSPHATE
     Indication: DIABETES MELLITUS
  5. DULERA [Suspect]
     Active Substance: FORMOTEROL FUMARATE DIHYDRATE\MOMETASONE FUROATE
     Indication: ASTHMA
     Dosage: 2 PUFFS TWICE A DAY; ROUTE OF ADMINISTRATION ALSO REPORTED AS ORAL
     Route: 055

REACTIONS (3)
  - Product use in unapproved indication [Unknown]
  - Cerebrovascular accident [Fatal]
  - Adverse event [Unknown]
